FAERS Safety Report 6460803-9 (Version None)
Quarter: 2009Q4

REPORT INFORMATION
  Report Type: 
  Country: None (occurrence: None)
  Receive Date: 20091130
  Receipt Date: 20091117
  Transmission Date: 20100525
  Serious: Yes (Death, Hospitalization, Other)
  Sender: FDA-Public Use
  Company Number: US-PFIZER INC-2009267028

PATIENT
  Sex: Male

DRUGS (5)
  1. SUTENT [Suspect]
     Indication: METASTATIC RENAL CELL CARCINOMA
     Dosage: 37.5 MG, 1X/DAY
  2. ACTOS [Concomitant]
     Dosage: 30 MG, 1X/DAY
  3. GLIMEPIRIDE [Concomitant]
     Dosage: 2 MG, 1X/DAY
  4. LASIX [Concomitant]
     Dosage: 40 MG, 1X/DAY
  5. SYNTHROID [Concomitant]
     Dosage: 50 UG, 1X/DAY

REACTIONS (7)
  - COUGH [None]
  - DEATH [None]
  - DYSPNOEA [None]
  - HAEMOGLOBIN DECREASED [None]
  - OEDEMA PERIPHERAL [None]
  - PLEURAL EFFUSION [None]
  - THROMBOCYTOPENIA [None]
